FAERS Safety Report 6493822-7 (Version None)
Quarter: 2009Q4

REPORT INFORMATION
  Report Type: 
  Country: None (occurrence: None)
  Receive Date: 20091214
  Receipt Date: 20081107
  Transmission Date: 20100525
  Serious: No
  Sender: FDA-Public Use
  Company Number: US-BRISTOL-MYERS SQUIBB COMPANY-14398333

PATIENT
  Age: 8 Year
  Sex: Male
  Weight: 24 kg

DRUGS (1)
  1. ABILIFY [Suspect]
     Indication: MOOD SWINGS
     Dosage: INITIAL DOSE: 2.5MG
     Dates: end: 20081106

REACTIONS (3)
  - HYPOAESTHESIA ORAL [None]
  - PAIN IN JAW [None]
  - TREMOR [None]
